FAERS Safety Report 5808771-4 (Version None)
Quarter: 2008Q3

REPORT INFORMATION
  Report Type: 
  Country: None (occurrence: None)
  Receive Date: 20080710
  Receipt Date: 20080710
  Transmission Date: 20090109
  Serious: Yes (Hospitalization)
  Sender: FDA-Public Use
  Company Number: None

PATIENT
  Age: 59 Year
  Sex: Male

DRUGS (2)
  1. CLOPIDOGREL [Suspect]
     Dosage: 75 MG EVERY DAY PO
     Route: 048
     Dates: end: 20080522
  2. ASPIRIN [Suspect]
     Dosage: 325 MG EVERY DAY PO
     Route: 048
     Dates: end: 20080522

REACTIONS (7)
  - ANAEMIA [None]
  - CHEST PAIN [None]
  - DIZZINESS [None]
  - EPIGASTRIC DISCOMFORT [None]
  - GASTRIC HAEMORRHAGE [None]
  - MELAENA [None]
  - TROPONIN INCREASED [None]
